FAERS Safety Report 14901851 (Version 2)
Quarter: 2019Q2

REPORT INFORMATION
  Report Type: Spontaneous
  Country: US (occurrence: US)
  Receive Date: 20180516
  Receipt Date: 20190411
  Transmission Date: 20190711
  Serious: Yes (Death, Hospitalization, Other)
  Sender: FDA-Public Use
  Company Number: US-VERTEX PHARMACEUTICALS-2018-003276

PATIENT
  Age: 26 Year
  Sex: Female

DRUGS (20)
  1. TYLENOL [Concomitant]
     Active Substance: ACETAMINOPHEN
  2. METOPROLOL. [Concomitant]
     Active Substance: METOPROLOL
  3. PAXIL [Concomitant]
     Active Substance: PAROXETINE HYDROCHLORIDE
  4. NEXPLANON [Concomitant]
     Active Substance: ETONOGESTREL
  5. XOPENEX [Concomitant]
     Active Substance: LEVALBUTEROL HYDROCHLORIDE
  6. ZOFRAN [Concomitant]
     Active Substance: ONDANSETRON HYDROCHLORIDE
  7. OXYCODONE AND ACETAMINOPHEN [Concomitant]
     Active Substance: ACETAMINOPHEN\OXYCODONE HYDROCHLORIDE
  8. SYMDEKO [Suspect]
     Active Substance: IVACAFTOR\TEZACAFTOR
     Indication: CYSTIC FIBROSIS
     Dosage: 100MG TEZACAFTOR/150MG IVACAFTOR; 150MG IVACAFTOR (FREQUENCY UNKNOWN)
     Route: 048
     Dates: start: 20180416, end: 20180502
  9. LOVENOX [Concomitant]
     Active Substance: ENOXAPARIN SODIUM
  10. IBUPROFEN. [Concomitant]
     Active Substance: IBUPROFEN
  11. URSODIOL. [Concomitant]
     Active Substance: URSODIOL
  12. ZENPEP [Concomitant]
     Active Substance: PANCRELIPASE AMYLASE\PANCRELIPASE LIPASE\PANCRELIPASE PROTEASE
  13. DEXILANT [Concomitant]
     Active Substance: DEXLANSOPRAZOLE
  14. PULMOZYME [Concomitant]
     Active Substance: DORNASE ALFA
  15. ATIVAN [Concomitant]
     Active Substance: LORAZEPAM
  16. RELIZORB [Concomitant]
  17. KLONOPIN [Concomitant]
     Active Substance: CLONAZEPAM
  18. DIFLUCAN [Concomitant]
     Active Substance: FLUCONAZOLE
  19. FLAGYL [Concomitant]
     Active Substance: METRONIDAZOLE\METRONIDAZOLE HYDROCHLORIDE
  20. ACYCLOVIR                          /00587301/ [Concomitant]
     Active Substance: ACYCLOVIR
     Dosage: UNK
     Dates: start: 20180417

REACTIONS (3)
  - Hospitalisation [Unknown]
  - Respiratory failure [Unknown]
  - Death [Fatal]

NARRATIVE: CASE EVENT DATE: 2018
